FAERS Safety Report 5514254-1 (Version None)
Quarter: 2007Q4

REPORT INFORMATION
  Report Type: 
  Country: None (occurrence: None)
  Receive Date: 20071102
  Receipt Date: 20070723
  Transmission Date: 20080405
  Serious: Yes (Hospitalization)
  Sender: FDA-Public Use
  Company Number: 508177

PATIENT
  Age: 73 Year
  Sex: Female

DRUGS (15)
  1. BONIVA [Suspect]
     Indication: OSTEOPOROSIS
     Dosage: INTRAVENOUS
     Route: 042
     Dates: start: 20070604
  2. LASIX [Concomitant]
  3. TOPROL-XL [Concomitant]
  4. NORVASC [Concomitant]
  5. ACCUPRIL (CHINAPRYL) [Concomitant]
  6. LANTUS [Concomitant]
  7. NOVOLOG [Concomitant]
  8. LIPITOR [Concomitant]
  9. AGGRENOX [Concomitant]
  10. PRILOSEC [Concomitant]
  11. FERROUS SULFATE TAB [Concomitant]
  12. MULTIVITAMIN NOS (MULTIVITAMIN NOS) [Concomitant]
  13. CALCIUM (CALCIUM) [Concomitant]
  14. COLACE (DOCUSATE SODIUM) [Concomitant]
  15. UNSPECIFIED DRUG (GENERIC UNKNOWN) [Concomitant]

REACTIONS (1)
  - HYPERTENSION [None]
